FAERS Safety Report 7287257-7 (Version None)
Quarter: 2011Q1

REPORT INFORMATION
  Report Type: 
  Country: None (occurrence: None)
  Receive Date: 20110125
  Receipt Date: 20110110
  Transmission Date: 20110831
  Serious: Yes (Hospitalization, Disabling)
  Sender: FDA-Public Use
  Company Number: 2010P1002306

PATIENT
  Age: 27 Year
  Sex: Female
  Weight: 58.9676 kg

DRUGS (9)
  1. FENTANYL-25 [Suspect]
  2. FENTANYL-25 [Suspect]
     Indication: ABDOMINAL PAIN UPPER
     Dosage: 25 MCG/HR;Q3D;TDER, 50 MCG;HR;Q3D;TDER
     Route: 062
     Dates: end: 20100801
  3. FENTANYL-25 [Suspect]
     Indication: GASTROENTERITIS EOSINOPHILIC
     Dosage: 25 MCG/HR;Q3D;TDER, 50 MCG;HR;Q3D;TDER
     Route: 062
     Dates: end: 20100801
  4. FENTANYL-25 [Suspect]
     Indication: ABDOMINAL PAIN UPPER
     Dosage: 25 MCG/HR;Q3D;TDER, 50 MCG;HR;Q3D;TDER
     Route: 062
     Dates: start: 20100801
  5. FENTANYL-25 [Suspect]
     Indication: GASTROENTERITIS EOSINOPHILIC
     Dosage: 25 MCG/HR;Q3D;TDER, 50 MCG;HR;Q3D;TDER
     Route: 062
     Dates: start: 20100801
  6. FENTANYL-25 [Suspect]
  7. FENTANYL-25 [Suspect]
  8. FENTANYL-25 [Suspect]
  9. FENTANYL-25 [Suspect]

REACTIONS (16)
  - VOMITING [None]
  - INADEQUATE ANALGESIA [None]
  - CONDITION AGGRAVATED [None]
  - UNDERDOSE [None]
  - EOSINOPHILIA [None]
  - GASTRITIS HAEMORRHAGIC [None]
  - EPSTEIN-BARR VIRUS ANTIGEN POSITIVE [None]
  - DIARRHOEA [None]
  - GASTROOESOPHAGEAL REFLUX DISEASE [None]
  - OVERDOSE [None]
  - NAUSEA [None]
  - ABDOMINAL PAIN [None]
  - BLOOD IMMUNOGLOBULIN E INCREASED [None]
  - BLOOD IMMUNOGLOBULIN G DECREASED [None]
  - OESOPHAGITIS [None]
  - GASTROENTERITIS EOSINOPHILIC [None]
